FAERS Safety Report 23830914 (Version 1)
Quarter: 2024Q2

REPORT INFORMATION
  Report Type: Spontaneous
  Country: CN (occurrence: CN)
  Receive Date: 20240508
  Receipt Date: 20240508
  Transmission Date: 20240716
  Serious: Yes (Other)
  Sender: FDA-Public Use
  Company Number: CN-BAYER-2024A068044

PATIENT
  Age: 68 Year
  Sex: Female
  Weight: 53 kg

DRUGS (8)
  1. LORATADINE [Suspect]
     Active Substance: LORATADINE
     Indication: Allergic cough
     Dosage: 10 MG, QD
     Route: 048
     Dates: start: 20240409, end: 20240414
  2. DOXOFYLLINE [Suspect]
     Active Substance: DOXOFYLLINE
     Indication: Bronchitis
     Dosage: 0.2 G, BID
     Route: 042
     Dates: start: 20240410, end: 20240423
  3. MOSAPRIDE CITRATE [Suspect]
     Active Substance: MOSAPRIDE CITRATE
     Indication: Gastrooesophageal reflux disease
     Dosage: 5 MG, TID
     Route: 048
     Dates: start: 20240408, end: 20240412
  4. INVESTIGATIONAL PRODUCT [Suspect]
     Active Substance: INVESTIGATIONAL PRODUCT
     Indication: Bronchitis
     Dosage: 0.3 G, TID
     Route: 048
     Dates: start: 20240409, end: 20240410
  5. PANTOPRAZOLE SODIUM [Suspect]
     Active Substance: PANTOPRAZOLE SODIUM
     Indication: Gastrooesophageal reflux disease
     Dosage: 40 MG, QD
     Route: 041
     Dates: start: 20240408, end: 20240415
  6. THEOPHYLLINE [Suspect]
     Active Substance: THEOPHYLLINE
     Indication: Bronchitis
     Dosage: 0.2 G, BID
     Route: 048
     Dates: start: 20240409, end: 20240410
  7. SODIUM CHLORIDE [Concomitant]
     Active Substance: SODIUM CHLORIDE
     Indication: Vehicle solution use
     Dosage: 100 ML, QD
     Route: 041
     Dates: start: 20240408, end: 20240415
  8. SODIUM CHLORIDE [Concomitant]
     Active Substance: SODIUM CHLORIDE
     Indication: Vehicle solution use
     Dosage: 100 ML, BID
     Route: 041
     Dates: start: 20240410, end: 20240423

REACTIONS (4)
  - Hepatic enzyme increased [Recovering/Resolving]
  - Abdominal distension [None]
  - Abdominal pain [None]
  - Off label use [None]

NARRATIVE: CASE EVENT DATE: 20240409
